FAERS Safety Report 9198857 (Version 6)
Quarter: 2013Q3

REPORT INFORMATION
  Report Type: Report from Study
  Country: US (occurrence: US)
  Receive Date: 20130329
  Receipt Date: 20130731
  Transmission Date: 20140515
  Serious: Yes (Life-Threatening, Hospitalization)
  Sender: FDA-Public Use
  Company Number: US-009507513-1303USA012946

PATIENT
  Age: 39 Year
  Sex: Female
  Weight: 93 kg

DRUGS (19)
  1. VORINOSTAT [Suspect]
     Indication: LYMPHOMA AIDS RELATED
     Dosage: 300MG PO ON DAYS 1-5 CYCLE OF 21 DAYS
     Route: 048
     Dates: start: 20130201, end: 20130205
  2. VORINOSTAT [Suspect]
     Dosage: 300MG PO ON DAYS 1-5 CYCLE OF 21 DAYS
     Route: 048
     Dates: start: 20130220, end: 20130224
  3. RITUXIMAB [Suspect]
     Indication: LYMPHOMA AIDS RELATED
     Dosage: 375 MG/M2 IV ON DAY 1
     Route: 042
     Dates: start: 20130201, end: 20130201
  4. RITUXIMAB [Suspect]
     Dosage: 375 MG/M2 IV ON DAY 1
     Route: 042
     Dates: start: 20130220, end: 20130220
  5. RITUXIMAB [Suspect]
     Dosage: 375 MG/M2 IV ON DAY 1
     Route: 042
     Dates: start: 20130513, end: 20130513
  6. ETOPOSIDE [Suspect]
     Indication: LYMPHOMA AIDS RELATED
     Dosage: 50 MG/M2/DAY CONTINUOUS IV INFUSION OVER 96 HOUR ON DAYS 1-4
     Route: 042
     Dates: start: 20130201, end: 20130205
  7. ETOPOSIDE [Suspect]
     Dosage: 50 MG/M2/DAY CONTINUOUS IV INFUSION OVER 96 HOUR ON DAYS 1-4
     Route: 042
     Dates: start: 20130221, end: 20130224
  8. ETOPOSIDE [Suspect]
     Dosage: 50 MG/M2/DAY CONTINUOUS IV INFUSION OVER 96 HOUR ON DAYS
     Route: 042
     Dates: start: 20130513, end: 20130516
  9. DOXORUBICIN [Suspect]
     Indication: LYMPHOMA AIDS RELATED
     Dosage: 10 MG/M2/DAY CONTINUOUS IV INFUSION OVER 96 HOUR ON DAYS 1-4
     Route: 042
     Dates: start: 20130201, end: 20130205
  10. DOXORUBICIN [Suspect]
     Dosage: 10 MG/M2/DAY CONTINUOUS IV INFUSION OVER 96 HOUR ON DAYS 1-4
     Route: 042
     Dates: start: 20130221, end: 20130224
  11. DOXORUBICIN [Suspect]
     Dosage: 10 MG/M2/DAY CONTINUOUS IV INFUSION OVER 96 HOUR ON DAYS
     Route: 042
     Dates: start: 20130513, end: 20130516
  12. VINCRISTINE [Suspect]
     Indication: LYMPHOMA AIDS RELATED
     Dosage: 0.4 MG/M2/DAY CONTINUOUS IV INFUSION OVER 96 HOUR ON DAYS 1-4
     Route: 042
     Dates: start: 20130201, end: 20130205
  13. VINCRISTINE [Suspect]
     Dosage: 0.4 MG/M2/DAY CONTINUOUS IV INFUSION OVER 96 HOUR ON DAYS 1-4
     Route: 042
     Dates: start: 20130221, end: 20130224
  14. VINCRISTINE [Suspect]
     Dosage: 0.4 MG/M2/DAY CONTINUOUS IV NFUSION OVER 96 HOUR ON DAYS 1-4
     Route: 042
     Dates: start: 20130513, end: 20130516
  15. PREDNISONE [Suspect]
     Indication: LYMPHOMA AIDS RELATED
     Dosage: 60 MG/M2/DAY PO ON DAYS 1-5
     Route: 048
     Dates: start: 20130201, end: 20130206
  16. PREDNISONE [Suspect]
     Dosage: 60 MG/M2/DAY PO ON DAYS 1-5
     Route: 048
     Dates: start: 20130220, end: 20130224
  17. PREDNISONE [Suspect]
     Dosage: 60 MG/M2/DAY PO ON DAYS 1-5
     Route: 048
     Dates: start: 20130513, end: 20130517
  18. CYCLOPHOSPHAMIDE [Suspect]
     Indication: LYMPHOMA AIDS RELATED
     Dosage: 375 MG/M2- 750MG/M2 IV OVER 1 HOUR ON DAY 5
     Route: 042
     Dates: start: 20130206, end: 20130206
  19. CYCLOPHOSPHAMIDE [Suspect]
     Dosage: 375 MG/M2- 750MG/M2 IV OVER 1 HOUR ON DAY 5
     Route: 042
     Dates: start: 20130225, end: 20130225

REACTIONS (8)
  - Wernicke^s encephalopathy [Recovered/Resolved]
  - Delirium [Recovering/Resolving]
  - Lymphocyte count decreased [Recovered/Resolved]
  - Neutrophil count decreased [Recovered/Resolved]
  - Platelet count decreased [Recovered/Resolved]
  - White blood cell count decreased [Recovered/Resolved]
  - Nausea [Not Recovered/Not Resolved]
  - Vomiting [Not Recovered/Not Resolved]
